FAERS Safety Report 6491995-3 (Version None)
Quarter: 2009Q4

REPORT INFORMATION
  Report Type: 
  Country: None (occurrence: None)
  Receive Date: 20091208
  Receipt Date: 20091104
  Transmission Date: 20100525
  Serious: Yes (Other)
  Sender: FDA-Public Use
  Company Number: 8054916

PATIENT
  Age: 54 Year
  Sex: Female

DRUGS (5)
  1. KEPPRA [Suspect]
     Indication: PARTIAL SEIZURES
     Dosage: 125 MG 1/D
  2. KEPPRA [Suspect]
     Indication: PARTIAL SEIZURES
     Dosage: 750 MG 2/D
  3. KEPPRA [Suspect]
     Indication: PARTIAL SEIZURES
     Dosage: 250 MG 1/D PO
     Route: 048
     Dates: start: 20090706, end: 20090713
  4. OXCARBAZEPINE [Concomitant]
  5. CLONAZEPAM [Concomitant]

REACTIONS (3)
  - DIZZINESS [None]
  - PRURITUS [None]
  - RASH ERYTHEMATOUS [None]
